FAERS Safety Report 5047985-0 (Version None)
Quarter: 2006Q2

REPORT INFORMATION
  Report Type: 
  Country: None (occurrence: None)
  Receive Date: 20060601
  Receipt Date: 20060323
  Transmission Date: 20061013
  Serious: No
  Sender: FDA-Public Use
  Company Number: 2006PV010833

PATIENT
  Age: 75 Year
  Sex: Male
  Weight: 74.8435 kg

DRUGS (4)
  1. BYETTA [Suspect]
     Indication: DIABETES MELLITUS NON-INSULIN-DEPENDENT
     Dosage: SEE IMAGE
     Route: 058
     Dates: start: 20051101, end: 20051201
  2. BYETTA [Suspect]
     Indication: DIABETES MELLITUS NON-INSULIN-DEPENDENT
     Dosage: SEE IMAGE
     Route: 058
     Dates: start: 20051201
  3. AVANDIA [Concomitant]
  4. STARLIX [Concomitant]

REACTIONS (7)
  - ANOREXIA [None]
  - ARRHYTHMIA [None]
  - ERUCTATION [None]
  - FATIGUE [None]
  - HEART RATE INCREASED [None]
  - VOMITING [None]
  - WEIGHT DECREASED [None]
